FAERS Safety Report 4650803-3 (Version None)
Quarter: 2005Q2

REPORT INFORMATION
  Report Type: 
  Country: None (occurrence: None)
  Receive Date: 20050503
  Receipt Date: 20050425
  Transmission Date: 20051028
  Serious: Yes (Life-Threatening)
  Sender: FDA-Public Use
  Company Number: JP-GLAXOSMITHKLINE-B0379302A

PATIENT
  Age: 68 Year
  Sex: Female

DRUGS (9)
  1. VALTREX [Suspect]
     Indication: HERPES ZOSTER
     Dosage: 1000MG THREE TIMES PER DAY
     Route: 048
     Dates: start: 20050422, end: 20050423
  2. ATELEC [Concomitant]
     Dosage: 10MG TWICE PER DAY
     Route: 048
  3. MEVALOTIN [Concomitant]
     Dosage: 10MG PER DAY
     Route: 048
  4. DIOVAN [Concomitant]
     Dosage: 80MG PER DAY
     Route: 048
  5. CEROCRAL [Concomitant]
     Dosage: 20MG TWICE PER DAY
     Route: 048
  6. DEPAS [Concomitant]
     Dosage: .5MG PER DAY
     Route: 048
  7. BASEN [Concomitant]
     Route: 048
  8. MELBIN [Concomitant]
     Route: 048
  9. AMARYL [Concomitant]
     Route: 048

REACTIONS (3)
  - BLOOD CREATININE INCREASED [None]
  - URINE OUTPUT DECREASED [None]
  - VOMITING [None]
